FAERS Safety Report 15624999 (Version 1)
Quarter: 2018Q4

REPORT INFORMATION
  Report Type: Spontaneous
  Country: US (occurrence: US)
  Receive Date: 20181116
  Receipt Date: 20181116
  Transmission Date: 20190205
  Serious: Yes (Hospitalization, Other)
  Sender: FDA-Public Use
  Company Number: PHEH2018US046572

PATIENT
  Sex: Male

DRUGS (1)
  1. DESFERAL [Suspect]
     Active Substance: DEFEROXAMINE MESYLATE
     Indication: SICKLE CELL ANAEMIA
     Route: 058

REACTIONS (13)
  - Mood altered [Unknown]
  - Pain [Unknown]
  - Injection site pain [Unknown]
  - Aphasia [Unknown]
  - Cerebrovascular accident [Unknown]
  - Arthropathy [Unknown]
  - Eye disorder [Unknown]
  - Sleep apnoea syndrome [Unknown]
  - Abnormal behaviour [Unknown]
  - Blindness [Unknown]
  - Pneumonia [Unknown]
  - Arthralgia [Unknown]
  - Visual impairment [Unknown]

NARRATIVE: CASE EVENT DATE: 2010
